FAERS Safety Report 23150162 (Version 1)
Quarter: 2023Q4

REPORT INFORMATION
  Report Type: Spontaneous
  Country: CN (occurrence: CN)
  Receive Date: 20231106
  Receipt Date: 20231106
  Transmission Date: 20240110
  Serious: Yes (Hospitalization, Other)
  Sender: FDA-Public Use
  Company Number: CN-JNJFOC-20231075177

PATIENT
  Age: 19 Year
  Sex: Female
  Weight: 70 kg

DRUGS (5)
  1. TOPAMAX [Suspect]
     Active Substance: TOPIRAMATE
     Indication: Bulimia nervosa
     Route: 048
     Dates: start: 20230925, end: 20231024
  2. LORAZEPAM [Concomitant]
     Active Substance: LORAZEPAM
     Indication: Bulimia nervosa
     Route: 048
     Dates: start: 20230916, end: 20231027
  3. ESZOPICLONE [Concomitant]
     Active Substance: ESZOPICLONE
     Indication: Bulimia nervosa
     Route: 048
     Dates: start: 20230916, end: 20231027
  4. FLUOXETINE HYDROCHLORIDE [Concomitant]
     Active Substance: FLUOXETINE HYDROCHLORIDE
     Indication: Bulimia nervosa
     Route: 048
     Dates: start: 20230918, end: 20230925
  5. FLUOXETINE HYDROCHLORIDE [Concomitant]
     Active Substance: FLUOXETINE HYDROCHLORIDE
     Route: 048
     Dates: start: 20230925, end: 20231003

REACTIONS (2)
  - Dermatitis allergic [Recovering/Resolving]
  - Off label use [Unknown]

NARRATIVE: CASE EVENT DATE: 20230925
